FAERS Safety Report 25200665 (Version 1)
Quarter: 2025Q2

REPORT INFORMATION
  Report Type: Report from Study
  Country: US (occurrence: US)
  Receive Date: 20250415
  Receipt Date: 20250415
  Transmission Date: 20250717
  Serious: Yes (Hospitalization, Other)
  Sender: BAYER
  Company Number: US-BAYER-2025A027084

PATIENT
  Age: 30 Year
  Sex: Female
  Weight: 133.79 kg

DRUGS (19)
  1. ADEMPAS [Suspect]
     Active Substance: RIOCIGUAT
     Indication: Pulmonary arterial hypertension
     Dates: start: 201809
  2. ADEMPAS [Suspect]
     Active Substance: RIOCIGUAT
     Indication: Pulmonary arterial hypertension
     Route: 048
     Dates: start: 20230117
  3. ADEMPAS [Suspect]
     Active Substance: RIOCIGUAT
     Indication: Pulmonary arterial hypertension
     Dosage: 1.5 MG, TID
     Route: 048
  4. OLANZAPINE [Concomitant]
     Active Substance: OLANZAPINE
  5. KEPPRA [Concomitant]
     Active Substance: LEVETIRACETAM
  6. CARAFATE [Concomitant]
     Active Substance: SUCRALFATE
  7. BACLOFEN [Concomitant]
     Active Substance: BACLOFEN
  8. PANTOPRAZOLE SODIUM [Concomitant]
     Active Substance: PANTOPRAZOLE SODIUM
  9. LORAZEPAM [Concomitant]
     Active Substance: LORAZEPAM
  10. LASIX [Concomitant]
     Active Substance: FUROSEMIDE
  11. ATENOLOL [Concomitant]
     Active Substance: ATENOLOL
  12. VITAMINS [Concomitant]
     Active Substance: VITAMINS
  13. LOVENOX [Concomitant]
     Active Substance: ENOXAPARIN SODIUM
  14. CITALOPRAM HYDROBROMIDE [Concomitant]
     Active Substance: CITALOPRAM HYDROBROMIDE
  15. SPIRONOLACTONE [Concomitant]
     Active Substance: SPIRONOLACTONE
  16. OXYGEN [Concomitant]
     Active Substance: OXYGEN
  17. BUTALBITAL, ACETAMINOPHEN, AND CAFFEINE [Concomitant]
     Active Substance: ACETAMINOPHEN\BUTALBITAL\CAFFEINE
  18. FUROSEMIDE [Concomitant]
     Active Substance: FUROSEMIDE
  19. SOTALOL [Concomitant]
     Active Substance: SOTALOL

REACTIONS (4)
  - Hospitalisation [Not Recovered/Not Resolved]
  - Cardiac disorder [None]
  - Concussion [None]
  - Injury [None]

NARRATIVE: CASE EVENT DATE: 20250225
